FAERS Safety Report 13725405 (Version 1)
Quarter: 2017Q3

REPORT INFORMATION
  Report Type: Spontaneous
  Country: US (occurrence: US)
  Receive Date: 20170706
  Receipt Date: 20170706
  Transmission Date: 20171127
  Serious: Yes (Other)
  Sender: FDA-Public Use
  Company Number: None

PATIENT
  Age: 65 Year
  Sex: Male
  Weight: 85 kg

DRUGS (9)
  1. LOVENOX [Concomitant]
     Active Substance: ENOXAPARIN SODIUM
  2. VITAMIN C [Concomitant]
     Active Substance: ASCORBIC ACID
  3. TARCEVA [Suspect]
     Active Substance: ERLOTINIB HYDROCHLORIDE
     Indication: LUNG NEOPLASM MALIGNANT
     Dosage: ?          OTHER DOSE:MG;?
     Route: 048
     Dates: start: 20170324, end: 20170706
  4. COD LIVER OIL [Concomitant]
     Active Substance: COD LIVER OIL
  5. MULTIVITAMIN [Concomitant]
     Active Substance: VITAMINS
  6. OXYCODONE [Concomitant]
     Active Substance: OXYCODONE
  7. ALBUTEROL. [Concomitant]
     Active Substance: ALBUTEROL
  8. ATIVAN [Concomitant]
     Active Substance: LORAZEPAM
  9. VITAMIN D [Concomitant]
     Active Substance: CHOLECALCIFEROL

REACTIONS (1)
  - Disease progression [None]

NARRATIVE: CASE EVENT DATE: 20170706
